FAERS Safety Report 5714161-5 (Version None)
Quarter: 2008Q2

REPORT INFORMATION
  Report Type: 
  Country: None (occurrence: None)
  Receive Date: 20080423
  Receipt Date: 20070914
  Transmission Date: 20081010
  Serious: No
  Sender: FDA-Public Use
  Company Number: US-KINGPHARMUSA00001-K200701196

PATIENT

DRUGS (1)
  1. SKELAXIN [Suspect]
     Indication: OFF LABEL USE

REACTIONS (2)
  - GLOSSODYNIA [None]
  - ORAL PAIN [None]
